FAERS Safety Report 25415588 (Version 1)
Quarter: 2025Q2

REPORT INFORMATION
  Report Type: Spontaneous
  Country: DE (occurrence: DE)
  Receive Date: 20250610
  Receipt Date: 20250610
  Transmission Date: 20250717
  Serious: Yes (Other)
  Sender: AUROBINDO
  Company Number: DE-CADRBFARM-2025336447

PATIENT
  Age: 40 Year
  Sex: Male
  Weight: 82 kg

DRUGS (2)
  1. LINEZOLID [Suspect]
     Active Substance: LINEZOLID
     Indication: Portal vein thrombosis
     Route: 042
     Dates: start: 20240903, end: 20240917
  2. LINEZOLID [Suspect]
     Active Substance: LINEZOLID
     Indication: Bacterial infection

REACTIONS (3)
  - Polyneuropathy [Not Recovered/Not Resolved]
  - Tendon pain [Not Recovered/Not Resolved]
  - Arthralgia [Not Recovered/Not Resolved]

NARRATIVE: CASE EVENT DATE: 20240903
